FAERS Safety Report 17856303 (Version 1)
Quarter: 2020Q2

REPORT INFORMATION
  Report Type: Report from Study
  Country: GB (occurrence: GB)
  Receive Date: 20200603
  Receipt Date: 20200603
  Transmission Date: 20200714
  Serious: Yes (Death, Life-Threatening, Other)
  Sender: FDA-Public Use
  Company Number: NVSC2020GB090208

PATIENT
  Sex: Male

DRUGS (2)
  1. SANDOSTATIN LAR DEPOT [Suspect]
     Active Substance: OCTREOTIDE ACETATE
     Indication: NEUROENDOCRINE TUMOUR
     Dosage: 30 MG, QMO (SOLUTION)
     Route: 065
     Dates: start: 20191219, end: 20200331
  2. KISQALI [Suspect]
     Active Substance: RIBOCICLIB
     Indication: NEUROENDOCRINE TUMOUR
     Dosage: 30 MG, QMO (SOLUTION)
     Route: 065
     Dates: start: 201912

REACTIONS (5)
  - Malignant neoplasm progression [Unknown]
  - Terminal state [Unknown]
  - Product use in unapproved indication [Unknown]
  - Death [Fatal]
  - Neuroendocrine tumour [Unknown]

NARRATIVE: CASE EVENT DATE: 20200527
